FAERS Safety Report 4351086-4 (Version None)
Quarter: 2004Q2

REPORT INFORMATION
  Report Type: 
  Country: None (occurrence: None)
  Receive Date: 20040428
  Receipt Date: 20030710
  Transmission Date: 20050107
  Serious: Yes (Other)
  Sender: FDA-Public Use
  Company Number: US-JNJFOC-20030703344

PATIENT
  Age: 44 Year
  Sex: Female

DRUGS (5)
  1. ULTRAM [Suspect]
     Indication: TRIGEMINAL NEURALGIA
     Dosage: 50 MG, 4 IN 1 DAY, ORAL
     Route: 048
  2. ELAVIL [Concomitant]
  3. PAXIL [Concomitant]
  4. DILAUDID [Concomitant]
  5. TOPAMAX [Concomitant]

REACTIONS (1)
  - CONVULSION [None]
